FAERS Safety Report 7526712-9 (Version None)
Quarter: 2011Q2

REPORT INFORMATION
  Report Type: 
  Country: None (occurrence: None)
  Receive Date: 20110606
  Receipt Date: 20110603
  Transmission Date: 20111010
  Serious: Yes (Other)
  Sender: FDA-Public Use
  Company Number: US-UCBSA-034540

PATIENT
  Age: 67 Year
  Sex: Male

DRUGS (1)
  1. METOLAZONE [Suspect]
     Dates: start: 20110501, end: 20110101

REACTIONS (3)
  - OEDEMA PERIPHERAL [None]
  - DRUG INEFFECTIVE [None]
  - EJECTION FRACTION DECREASED [None]
